FAERS Safety Report 4518704-9 (Version None)
Quarter: 2004Q4

REPORT INFORMATION
  Report Type: 
  Country: None (occurrence: None)
  Receive Date: 20041201
  Receipt Date: 20041115
  Transmission Date: 20050328
  Serious: Yes (Hospitalization)
  Sender: FDA-Public Use
  Company Number: 2004-BP-10405NB

PATIENT
  Age: 67 Year
  Sex: Male

DRUGS (15)
  1. MICARDIS [Suspect]
     Indication: HYPERTENSION
     Dosage: 40 MG (40 MG)
     Route: 048
     Dates: start: 20041002, end: 20041014
  2. JUVELA N (KA) [Concomitant]
  3. RENIVACE (ENALAPRIL) [Concomitant]
  4. FURSULTIAMINE (FURSULTIAMINE) [Concomitant]
  5. GLIMICRON (GLICLAZIDE) [Concomitant]
  6. MUCOSTA (REBAMIPIDE) [Concomitant]
  7. HACHIMI-JIO-GAN (PL) [Concomitant]
  8. TOUGHMAC E (TOUGHMAC E) (KA) [Concomitant]
  9. CYANOCOBALAMIN [Concomitant]
  10. AMOXAN (AMOXAPINE) (KA) [Concomitant]
  11. ALMARL (AROTINOLOL HYDROCHLORIDE) (TA) [Concomitant]
  12. PANVITAN (PANVITAN) (PL) [Concomitant]
  13. LUDIOMIL (MAPROTILINE HYDROCHLORIDE) (TA) [Concomitant]
  14. ROHYPNOL (FLUNITRAZEPAM) (TA) [Concomitant]
  15. SAIKO-KA-RYUKOTSU-BOREI-TO (PL) [Concomitant]

REACTIONS (3)
  - ASTHENIA [None]
  - BLOOD CREATINE PHOSPHOKINASE INCREASED [None]
  - MOVEMENT DISORDER [None]
